FAERS Safety Report 4396117-0 (Version None)
Quarter: 2004Q2

REPORT INFORMATION
  Report Type: 
  Country: None (occurrence: None)
  Receive Date: 20040621
  Receipt Date: 20031121
  Transmission Date: 20050107
  Serious: Yes (Death)
  Sender: FDA-Public Use
  Company Number: USA-2003-0011036

PATIENT
  Age: 26 Year
  Sex: Male
  Weight: 75.7 kg

DRUGS (5)
  1. OXYCONTIN [Suspect]
     Dosage: 80 MG
  2. NICOTINE [Suspect]
  3. REMERON [Suspect]
     Dosage: 1 TABELT, HS, ORAL
     Route: 048
  4. CANNABIS (CANNABIS) [Suspect]
  5. CLONAZEPAM [Suspect]
     Dosage: TID, ORAL
     Route: 048

REACTIONS (1)
  - ACCIDENTAL OVERDOSE [None]
